FAERS Safety Report 6041119-1 (Version None)
Quarter: 2009Q1

REPORT INFORMATION
  Report Type: 
  Country: None (occurrence: None)
  Receive Date: 20090116
  Receipt Date: 20080827
  Transmission Date: 20090719
  Serious: No
  Sender: FDA-Public Use
  Company Number: US-BRISTOL-MYERS SQUIBB COMPANY-14317143

PATIENT
  Age: 19 Year
  Sex: Female
  Weight: 58 kg

DRUGS (2)
  1. ABILIFY [Suspect]
     Indication: AFFECTIVE DISORDER
     Dosage: 5 MG 2 TABLETS QD; DOSE DECREASED ON 25AUG2008 TO 5MG QD
     Dates: start: 20080101
  2. LOESTRIN 1.5/30 [Concomitant]

REACTIONS (4)
  - CRYING [None]
  - FEELING ABNORMAL [None]
  - NERVOUSNESS [None]
  - WEIGHT DECREASED [None]
